FAERS Safety Report 11616596 (Version 2)
Quarter: 2016Q3

REPORT INFORMATION
  Report Type: Spontaneous
  Country: US (occurrence: US)
  Receive Date: 20151009
  Receipt Date: 20160705
  Transmission Date: 20161109
  Serious: No
  Sender: FDA-Public Use
  Company Number: US-BAYER-2015-434099

PATIENT
  Sex: Female

DRUGS (28)
  1. AVELOX [Suspect]
     Active Substance: MOXIFLOXACIN HYDROCHLORIDE
     Dosage: UNK
     Dates: start: 20100811
  2. AVELOX [Suspect]
     Active Substance: MOXIFLOXACIN HYDROCHLORIDE
     Dosage: UNK
     Dates: start: 20100812
  3. AVELOX [Suspect]
     Active Substance: MOXIFLOXACIN HYDROCHLORIDE
     Dosage: UNK
     Dates: start: 20110406
  4. ROPINIROLE. [Concomitant]
     Active Substance: ROPINIROLE
  5. AVELOX [Suspect]
     Active Substance: MOXIFLOXACIN HYDROCHLORIDE
     Dosage: UNK
     Dates: start: 20060430
  6. AVELOX [Suspect]
     Active Substance: MOXIFLOXACIN HYDROCHLORIDE
     Dosage: UNK
     Dates: start: 20060502
  7. THEOPHYLLINE [Concomitant]
     Active Substance: THEOPHYLLINE ANHYDROUS
  8. ROCEPHIN [Concomitant]
     Active Substance: CEFTRIAXONE SODIUM
     Dosage: UNK
     Dates: start: 20101004
  9. AVELOX [Suspect]
     Active Substance: MOXIFLOXACIN HYDROCHLORIDE
     Dosage: UNK
     Dates: start: 2006
  10. AVELOX [Suspect]
     Active Substance: MOXIFLOXACIN HYDROCHLORIDE
     Dosage: UNK
     Dates: start: 20060501
  11. CIPRO [Suspect]
     Active Substance: CIPROFLOXACIN HYDROCHLORIDE
     Dosage: UNK
     Dates: start: 2006
  12. CIPRO [Suspect]
     Active Substance: CIPROFLOXACIN HYDROCHLORIDE
     Dosage: UNK
     Dates: start: 20101004
  13. TIZANIDINE. [Concomitant]
     Active Substance: TIZANIDINE
  14. WARFARIN [Concomitant]
     Active Substance: WARFARIN
  15. AVELOX [Suspect]
     Active Substance: MOXIFLOXACIN HYDROCHLORIDE
     Dosage: UNK
     Dates: start: 20110408
  16. METHOTREXATE. [Concomitant]
     Active Substance: METHOTREXATE
  17. GLIBENCLAMIDE [Concomitant]
     Active Substance: GLYBURIDE
  18. AVELOX [Suspect]
     Active Substance: MOXIFLOXACIN HYDROCHLORIDE
     Dosage: UNK
     Dates: start: 20100810
  19. AVELOX [Suspect]
     Active Substance: MOXIFLOXACIN HYDROCHLORIDE
     Dosage: UNK
     Dates: start: 20100815
  20. CLOZAPINE. [Concomitant]
     Active Substance: CLOZAPINE
     Dosage: UNK
  21. AVELOX [Suspect]
     Active Substance: MOXIFLOXACIN HYDROCHLORIDE
     Dosage: UNK
     Dates: start: 20110407
  22. CYCLOSPORINE. [Concomitant]
     Active Substance: CYCLOSPORINE
  23. TEQUIN [Concomitant]
     Active Substance: GATIFLOXACIN
     Dosage: UNK
     Dates: start: 20091203
  24. AVELOX [Suspect]
     Active Substance: MOXIFLOXACIN HYDROCHLORIDE
     Dosage: UNK
     Dates: start: 20060429
  25. LEVAQUIN [Suspect]
     Active Substance: LEVOFLOXACIN
     Dosage: UNK
     Dates: start: 2006
  26. DULOXETINE. [Concomitant]
     Active Substance: DULOXETINE
  27. METOCLOPRAMIDE. [Concomitant]
     Active Substance: METOCLOPRAMIDE
     Dosage: UNK
  28. OMEPRAZOLE. [Concomitant]
     Active Substance: OMEPRAZOLE
     Dosage: UNK

REACTIONS (7)
  - Injury [None]
  - Pain [None]
  - Emotional distress [None]
  - Neuropathy peripheral [None]
  - Hypoaesthesia [None]
  - Neuropathy peripheral [None]
  - Pain in extremity [None]

NARRATIVE: CASE EVENT DATE: 2006
